FAERS Safety Report 4371145-X (Version None)
Quarter: 2004Q2

REPORT INFORMATION
  Report Type: 
  Country: None (occurrence: None)
  Receive Date: 20040601
  Receipt Date: 20040520
  Transmission Date: 20050107
  Serious: Yes (Other)
  Sender: FDA-Public Use
  Company Number: US-JNJFOC-20040505032

PATIENT
  Age: 84 Year
  Sex: Female

DRUGS (12)
  1. INFLIXIMAB (INFLIXIMAB, RECOMBINANT) LYOPHILIZED POWDER [Suspect]
     Indication: RHEUMATOID ARTHRITIS
     Dosage: ,  1 IN 8 WEEK, INTRAVENOUS
     Route: 042
     Dates: start: 20000921
  2. DITROPAN [Concomitant]
  3. ESTROGEN (ESTROGEN NOS) [Concomitant]
  4. FOLIC ACID [Concomitant]
  5. HYDROCHLOROTHIAZIDE [Concomitant]
  6. INSULIN [Concomitant]
  7. METHOTREXATE (METHOTRXATE) [Concomitant]
  8. OSCAL (CALCIUM CARBONATE) [Concomitant]
  9. POTASSIUM (POTASSIUM) [Concomitant]
  10. PROVERA [Concomitant]
  11. SYNTHROID [Concomitant]
  12. VITAMIN C (ASCORBIC ACID) [Concomitant]

REACTIONS (2)
  - RECURRENT CANCER [None]
  - SKIN CANCER [None]
